FAERS Safety Report 6526143-4 (Version None)
Quarter: 2009Q4

REPORT INFORMATION
  Report Type: 
  Country: None (occurrence: None)
  Receive Date: 20091228
  Receipt Date: 20091215
  Transmission Date: 20100525
  Serious: Yes (Other)
  Sender: FDA-Public Use
  Company Number: 232607J09USA

PATIENT
  Age: 56 Year
  Sex: Female
  Weight: 62 kg

DRUGS (7)
  1. REBIF [Suspect]
     Indication: MULTIPLE SCLEROSIS
     Dosage: 44 MCG, 3 IN 1 WEEKS, SUBCUTANEOUS
     Route: 058
     Dates: start: 20090730
  2. LEVOTHYROXINE (LEVOTHYROXINE /00068001/) [Concomitant]
  3. CELEXA [Concomitant]
  4. ATIVAN [Concomitant]
  5. ALBUTEROL [Concomitant]
  6. ATROVENT [Concomitant]
  7. ACTONEL [Concomitant]

REACTIONS (3)
  - DYSURIA [None]
  - RENAL CYST [None]
  - RENAL IMPAIRMENT [None]
